FAERS Safety Report 23039887 (Version 1)
Quarter: 2023Q4

REPORT INFORMATION
  Report Type: Spontaneous
  Country: DE (occurrence: DE)
  Receive Date: 20231006
  Receipt Date: 20231006
  Transmission Date: 20240110
  Serious: Yes (Hospitalization, Other)
  Sender: FDA-Public Use
  Company Number: DE-002147023-NVSC2023DE121816

PATIENT
  Sex: Male

DRUGS (2)
  1. ERELZI [Suspect]
     Active Substance: ETANERCEPT-SZZS
     Indication: Product used for unknown indication
     Dosage: 50 MG, QW
     Route: 065
     Dates: start: 201904, end: 20220603
  2. METHOTREXATE [Suspect]
     Active Substance: METHOTREXATE
     Indication: Product used for unknown indication
     Dosage: 7.5 MG, QW
     Route: 065
     Dates: end: 202206

REACTIONS (4)
  - Glioblastoma [Unknown]
  - Epilepsy [Unknown]
  - Asymptomatic bacteriuria [Unknown]
  - COVID-19 [Unknown]

NARRATIVE: CASE EVENT DATE: 20220525
